FAERS Safety Report 7828432-X (Version None)
Quarter: 2011Q4

REPORT INFORMATION
  Report Type: 
  Country: None (occurrence: None)
  Receive Date: 20111020
  Receipt Date: 20111017
  Transmission Date: 20120403
  Serious: No
  Sender: FDA-Public Use
  Company Number: US-PFIZER INC-2011249206

PATIENT
  Sex: Female

DRUGS (2)
  1. IBUPROFEN (ADVIL) [Suspect]
     Indication: PYREXIA
  2. IBUPROFEN (ADVIL) [Suspect]
     Indication: ANALGESIC THERAPY
     Dosage: 200 MG, UNK

REACTIONS (1)
  - ABDOMINAL DISTENSION [None]
